FAERS Safety Report 11531374 (Version 1)
Quarter: 2015Q3

REPORT INFORMATION
  Report Type: Spontaneous
  Country: US (occurrence: US)
  Receive Date: 20150921
  Receipt Date: 20150921
  Transmission Date: 20151125
  Serious: No
  Sender: FDA-Public Use
  Company Number: US-MEDA-2015020062

PATIENT
  Age: 71 Year
  Sex: Male
  Weight: 84 kg

DRUGS (3)
  1. PROCTOFOAM HC [Suspect]
     Active Substance: HYDROCORTISONE ACETATE\PRAMOXINE HYDROCHLORIDE
     Indication: HAEMORRHOIDS
     Route: 061
     Dates: start: 20150223, end: 20150223
  2. LEVOTHYROXINE. [Concomitant]
     Active Substance: LEVOTHYROXINE
     Indication: HYPOTHYROIDISM
  3. PREPARATION H NOS [Concomitant]
     Active Substance: COCOA BUTTER\PETROLATUM\PHENYLEPHRINE HYDROCHLORIDE\PHENYLEPHRINE HYDROCHLORIDE OR MINERAL OIL
     Indication: HAEMORRHOIDS
     Route: 061
     Dates: end: 20150220

REACTIONS (1)
  - Anorectal discomfort [Recovered/Resolved]

NARRATIVE: CASE EVENT DATE: 20150223
